FAERS Safety Report 7442106-9 (Version None)
Quarter: 2011Q2

REPORT INFORMATION
  Report Type: 
  Country: None (occurrence: None)
  Receive Date: 20110425
  Receipt Date: 20110425
  Transmission Date: 20111010
  Serious: Yes (Other)
  Sender: FDA-Public Use
  Company Number: None

PATIENT
  Sex: Female
  Weight: 54.8852 kg

DRUGS (2)
  1. SULFAMETHOXAZOLE AND TRIMETHOPRIM [Suspect]
     Indication: URINARY TRACT INFECTION
     Dosage: 1 TAB 2 TIMES A DAY 2 TIME A DAY
     Dates: start: 20110419
  2. SULFAMETHOXAZOLE AND TRIMETHOPRIM [Suspect]
     Indication: URINARY TRACT INFECTION
     Dosage: 1 TAB 2 TIMES A DAY 2 TIME A DAY
     Dates: start: 20110420

REACTIONS (3)
  - HYPERSENSITIVITY [None]
  - HEADACHE [None]
  - OCULAR HYPERAEMIA [None]
